FAERS Safety Report 11880356 (Version 4)
Quarter: 2016Q1

REPORT INFORMATION
  Report Type: Report from Study
  Country: AR (occurrence: AR)
  Receive Date: 20151230
  Receipt Date: 20160127
  Transmission Date: 20160526
  Serious: Yes (Other)
  Sender: FDA-Public Use
  Company Number: PHHY2015AR170489

PATIENT
  Age: 70 Year
  Sex: Female

DRUGS (6)
  1. DIOVAN D [Suspect]
     Active Substance: HYDROCHLOROTHIAZIDE\VALSARTAN
     Dosage: 1.5 DF, QD
     Route: 065
  2. LOSARTAN. [Suspect]
     Active Substance: LOSARTAN
     Indication: PRODUCT USED FOR UNKNOWN INDICATION
     Dosage: UNK
  3. DIOVAN D [Suspect]
     Active Substance: HYDROCHLOROTHIAZIDE\VALSARTAN
     Indication: HYPERTENSION
     Dosage: 1 DF, QD (FEW MONTHS AGO)
     Route: 065
  4. LEVOTHYROXINE. [Concomitant]
     Active Substance: LEVOTHYROXINE
     Indication: HYPOTHYROIDISM
     Dosage: 136 UG, QD
     Route: 065
  5. LEVOTHYROXINE. [Concomitant]
     Active Substance: LEVOTHYROXINE
     Indication: AUTOIMMUNE THYROIDITIS
     Dosage: 175 UG, QD
     Route: 065
  6. LEVOTHYROXINE. [Concomitant]
     Active Substance: LEVOTHYROXINE
     Dosage: 188 UG, QD
     Route: 065

REACTIONS (16)
  - Abasia [Recovered/Resolved]
  - Cough [Unknown]
  - Blood pressure increased [Recovered/Resolved]
  - Emotional disorder [Recovered/Resolved]
  - Accident [Recovering/Resolving]
  - Tachycardia [Recovered/Resolved]
  - Spinal pain [Recovered/Resolved]
  - Spinal fracture [Recovering/Resolving]
  - Dislocation of vertebra [Recovered/Resolved]
  - Paraesthesia [Recovering/Resolving]
  - Drug ineffective [Unknown]
  - Wrong technique in product usage process [Unknown]
  - Fall [Recovered/Resolved]
  - Bone marrow disorder [Unknown]
  - Neck pain [Recovered/Resolved]
  - Hypokinesia [Recovering/Resolving]

NARRATIVE: CASE EVENT DATE: 20150801
